FAERS Safety Report 14908512 (Version 1)
Quarter: 2018Q2

REPORT INFORMATION
  Report Type: Spontaneous
  Country: ZA (occurrence: ZA)
  Receive Date: 20180517
  Receipt Date: 20180517
  Transmission Date: 20180711
  Serious: Yes (Hospitalization)
  Sender: FDA-Public Use
  Company Number: ZA-PFIZER INC-2018197769

PATIENT
  Age: 60 Year
  Sex: Female

DRUGS (4)
  1. ESTROFEM [Suspect]
     Active Substance: ESTRADIOL CYPIONATE
     Dosage: 2 MG, UNK
  2. XANOR [Suspect]
     Active Substance: ALPRAZOLAM
     Dosage: 0.5 MG, UNK
  3. STILNOX MR [Suspect]
     Active Substance: ZOLPIDEM TARTRATE
     Dosage: 12.5 MG, UNK
  4. PEARINDA [Suspect]
     Active Substance: PERINDOPRIL ERBUMINE
     Dosage: 4 MG, UNK

REACTIONS (1)
  - Ligament rupture [Recovering/Resolving]
